FAERS Safety Report 25669031 (Version 2)
Quarter: 2025Q3

REPORT INFORMATION
  Report Type: Report from Study
  Country: US (occurrence: US)
  Receive Date: 20250812
  Receipt Date: 20250918
  Transmission Date: 20251020
  Serious: No
  Sender: SUNOVION
  Company Number: US-SUMITOMO PHARMA SWITZERLAND GMBH-2024SPA004894

PATIENT
  Age: 90 Year
  Sex: Male

DRUGS (5)
  1. ORGOVYX [Suspect]
     Active Substance: RELUGOLIX
     Indication: Prostate cancer
     Route: 048
     Dates: start: 20241016, end: 20241016
  2. ORGOVYX [Suspect]
     Active Substance: RELUGOLIX
     Dosage: 120 MG, QD
     Route: 048
     Dates: start: 20241017, end: 20250710
  3. DUPIXENT [Concomitant]
     Active Substance: DUPILUMAB
     Indication: Chronic obstructive pulmonary disease
  4. UNISOM SLEEPTABS [Concomitant]
     Active Substance: DOXYLAMINE SUCCINATE
     Indication: Insomnia
  5. UNISOM SLEEPTABS [Concomitant]
     Active Substance: DOXYLAMINE SUCCINATE
     Indication: Skin disorder

REACTIONS (14)
  - Chronic obstructive pulmonary disease [Unknown]
  - Joint effusion [Unknown]
  - Sneezing [Unknown]
  - Pain [Unknown]
  - Dizziness postural [Unknown]
  - Dyspnoea [Unknown]
  - Weight decreased [Unknown]
  - Skin disorder [Unknown]
  - Back disorder [Unknown]
  - Asthenia [Unknown]
  - Blood glucose increased [Unknown]
  - Insomnia [Unknown]
  - Fatigue [Unknown]
  - Pain in extremity [Unknown]
